FAERS Safety Report 7115046-2 (Version None)
Quarter: 2010Q4

REPORT INFORMATION
  Report Type: 
  Country: None (occurrence: None)
  Receive Date: 20101122
  Receipt Date: 20101109
  Transmission Date: 20110411
  Serious: Yes (Disabling, Other)
  Sender: FDA-Public Use
  Company Number: US-BAYER-201041585NA

PATIENT
  Sex: Female

DRUGS (12)
  1. MAGNEVIST [Suspect]
     Indication: IMAGING PROCEDURE
  2. OMNISCAN [Suspect]
     Indication: IMAGING PROCEDURE
  3. OPTIMARK [Suspect]
     Indication: IMAGING PROCEDURE
  4. MULTIHANCE [Suspect]
     Indication: IMAGING PROCEDURE
  5. PROHANCE [Suspect]
     Indication: IMAGING PROCEDURE
  6. UNSPECIFIED GBCA [Suspect]
     Indication: IMAGING PROCEDURE
     Dates: start: 20020824, end: 20020824
  7. UNSPECIFIED GBCA [Suspect]
     Dates: start: 20040604, end: 20040604
  8. UNSPECIFIED GBCA [Suspect]
     Dates: start: 20050525, end: 20050525
  9. UNSPECIFIED GBCA [Suspect]
     Dates: start: 20040517, end: 20040517
  10. UNSPECIFIED GBCA [Suspect]
     Dates: start: 20080225, end: 20080225
  11. UNSPECIFIED GBCA [Suspect]
     Dates: start: 20040716, end: 20040716
  12. UNSPECIFIED GBCA [Suspect]
     Dates: start: 20080604, end: 20080604

REACTIONS (6)
  - ANXIETY [None]
  - DEFORMITY [None]
  - EMOTIONAL DISTRESS [None]
  - FIBROSIS [None]
  - NEPHROGENIC SYSTEMIC FIBROSIS [None]
  - PAIN [None]
